FAERS Safety Report 5063190-6 (Version None)
Quarter: 2006Q3

REPORT INFORMATION
  Report Type: 
  Country: None (occurrence: None)
  Receive Date: 20060724
  Receipt Date: 20060724
  Transmission Date: 20061208
  Serious: No
  Sender: FDA-Public Use
  Company Number: None

PATIENT
  Sex: Male
  Weight: 15.8759 kg

DRUGS (1)
  1. ZYRTEC [Suspect]
     Indication: HYPERSENSITIVITY
     Dosage: 1X DAY PO
     Route: 048
     Dates: start: 20030601, end: 20051201

REACTIONS (7)
  - ABNORMAL BEHAVIOUR [None]
  - AGGRESSION [None]
  - AUTISM [None]
  - AUTISM SPECTRUM DISORDER [None]
  - DEVELOPMENTAL DELAY [None]
  - ECHOLALIA [None]
  - SPEECH DISORDER DEVELOPMENTAL [None]
